FAERS Safety Report 24215857 (Version 1)
Quarter: 2024Q3

REPORT INFORMATION
  Report Type: Spontaneous
  Country: NZ (occurrence: NZ)
  Receive Date: 20240816
  Receipt Date: 20240816
  Transmission Date: 20241016
  Serious: Yes (Death, Hospitalization)
  Sender: ROCHE
  Company Number: NZ-ROCHE-10000044475

PATIENT
  Age: 45 Year
  Sex: Male
  Weight: 52 kg

DRUGS (8)
  1. ERLOTINIB HYDROCHLORIDE [Suspect]
     Active Substance: ERLOTINIB HYDROCHLORIDE
     Indication: Hepatic cancer
     Route: 065
  2. SORAFENIB [Suspect]
     Active Substance: SORAFENIB
     Indication: Hepatic cancer
     Route: 065
  3. MORPHINE SULFATE [Concomitant]
     Active Substance: MORPHINE SULFATE
  4. PROTEIN [Concomitant]
     Active Substance: PROTEIN
  5. FUROSEMIDE [Concomitant]
     Active Substance: FUROSEMIDE
  6. SODIUM CHLORIDE [Concomitant]
     Active Substance: SODIUM CHLORIDE
  7. SPIRONOLACTONE [Concomitant]
     Active Substance: SPIRONOLACTONE
  8. MORPHINE [Concomitant]
     Active Substance: MORPHINE

REACTIONS (5)
  - Abdominal distension [Fatal]
  - Abdominal pain [Fatal]
  - Chest pain [Fatal]
  - Hepatic haemorrhage [Fatal]
  - Ascites [Fatal]

NARRATIVE: CASE EVENT DATE: 20101112
